FAERS Safety Report 9377809 (Version 1)
Quarter: 2013Q3

REPORT INFORMATION
  Report Type: Spontaneous
  Country: US (occurrence: US)
  Receive Date: 20130701
  Receipt Date: 20130701
  Transmission Date: 20140515
  Serious: No
  Sender: FDA-Public Use
  Company Number: US-GLAXOSMITHKLINE-A1010793A

PATIENT
  Age: 69 Year
  Sex: Female

DRUGS (7)
  1. IMITREX [Suspect]
     Indication: MIGRAINE
     Dosage: 100MG SEE DOSAGE TEXT
     Route: 048
  2. RELPAX [Concomitant]
  3. PROPRANOLOL [Concomitant]
  4. FROVA [Concomitant]
  5. FIORICET [Concomitant]
  6. FIORINAL [Concomitant]
  7. VICODIN [Concomitant]

REACTIONS (2)
  - Therapeutic response unexpected [Unknown]
  - Drug administration error [Unknown]
